FAERS Safety Report 7962726-2 (Version None)
Quarter: 2011Q4

REPORT INFORMATION
  Report Type: 
  Country: None (occurrence: None)
  Receive Date: 20111207
  Receipt Date: 20111123
  Transmission Date: 20120403
  Serious: Yes (Other)
  Sender: FDA-Public Use
  Company Number: PHFR2011GB006800

PATIENT
  Age: 33 Year
  Sex: Female

DRUGS (3)
  1. DICLOFENAC SODIUM [Suspect]
     Indication: ABORTION INDUCED
     Dosage: 100 MG, UNK
     Route: 054
  2. MISOPROSTOL [Concomitant]
     Indication: ABORTION INDUCED
     Dosage: 200 UG, UNK
     Route: 067
  3. METRONIDAZOLE [Suspect]
     Indication: ABORTION INDUCED
     Dosage: 1 G, UNK
     Route: 054

REACTIONS (1)
  - DYSTONIA [None]
